FAERS Safety Report 23623432 (Version 2)
Quarter: 2024Q1

REPORT INFORMATION
  Report Type: Spontaneous
  Country: US (occurrence: US)
  Receive Date: 20240312
  Receipt Date: 20240315
  Transmission Date: 20240410
  Serious: No
  Sender: FDA-Public Use
  Company Number: US-BIOVITRUM-2024-US-003974

PATIENT
  Age: 72 Year
  Sex: Male

DRUGS (2)
  1. VONJO [Suspect]
     Active Substance: PACRITINIB
     Indication: Myelofibrosis
     Dosage: 100 MG 2 PO BID
     Route: 048
  2. VONJO [Suspect]
     Active Substance: PACRITINIB
     Dosage: 200 MG TWICE DAILY
     Route: 048

REACTIONS (2)
  - Pruritus [Unknown]
  - Sleep disorder [Unknown]
